FAERS Safety Report 9855391 (Version 1)
Quarter: 2014Q1

REPORT INFORMATION
  Report Type: Spontaneous
  Country: FR (occurrence: FR)
  Receive Date: 20140130
  Receipt Date: 20140130
  Transmission Date: 20141002
  Serious: Yes (Other)
  Sender: FDA-Public Use
  Company Number: FR-JNJFOC-20140116734

PATIENT
  Sex: Female

DRUGS (9)
  1. XARELTO [Suspect]
     Indication: EMBOLISM VENOUS
     Route: 048
  2. XARELTO [Suspect]
     Indication: EMBOLISM VENOUS
     Route: 048
  3. XARELTO [Suspect]
     Indication: EMBOLISM VENOUS
     Route: 048
  4. XARELTO [Suspect]
     Indication: THROMBOSIS PROPHYLAXIS
     Route: 048
  5. XARELTO [Suspect]
     Indication: THROMBOSIS PROPHYLAXIS
     Route: 048
  6. XARELTO [Suspect]
     Indication: THROMBOSIS PROPHYLAXIS
     Route: 048
  7. XARELTO [Suspect]
     Indication: PULMONARY EMBOLISM
     Route: 048
  8. XARELTO [Suspect]
     Indication: PULMONARY EMBOLISM
     Route: 048
  9. XARELTO [Suspect]
     Indication: PULMONARY EMBOLISM
     Route: 048

REACTIONS (3)
  - Fatigue [Unknown]
  - Haemoptysis [Unknown]
  - Chest pain [Unknown]
